FAERS Safety Report 20545777 (Version 1)
Quarter: 2022Q1

REPORT INFORMATION
  Report Type: Spontaneous
  Country: US (occurrence: None)
  Receive Date: 20220302
  Receipt Date: 20220302
  Transmission Date: 20220423
  Serious: Yes (Other)
  Sender: FDA-Public Use
  Company Number: None

PATIENT
  Sex: Female

DRUGS (1)
  1. BOTOX [Suspect]
     Active Substance: ONABOTULINUMTOXINA
     Indication: Occipital neuralgia
     Dosage: INJECT 200 UNITS IN THE MUSCLE IN THE HEAD AND NECK EVERY 90 DAYS
     Dates: start: 20201204

REACTIONS (1)
  - Rheumatoid arthritis [None]
